FAERS Safety Report 6813951-5 (Version None)
Quarter: 2010Q3

REPORT INFORMATION
  Report Type: 
  Country: None (occurrence: None)
  Receive Date: 20100702
  Receipt Date: 20100626
  Transmission Date: 20110219
  Serious: Yes (Death)
  Sender: FDA-Public Use
  Company Number: GB-BAYER-201030390GPV

PATIENT
  Age: 57 Year
  Sex: Male

DRUGS (4)
  1. ALEMTUZUMAB [Suspect]
     Indication: STEM CELL TRANSPLANT
     Route: 042
  2. CYCLOPHOSPHAMIDE [Suspect]
     Indication: T-CELL PROLYMPHOCYTIC LEUKAEMIA
  3. ETOPOSIDE [Suspect]
     Indication: T-CELL PROLYMPHOCYTIC LEUKAEMIA
  4. PENTOSTATIN [Suspect]
     Indication: T-CELL PROLYMPHOCYTIC LEUKAEMIA

REACTIONS (2)
  - FUNGAL INFECTION [None]
  - MULTI-ORGAN FAILURE [None]
